FAERS Safety Report 14917815 (Version 1)
Quarter: 2018Q2

REPORT INFORMATION
  Report Type: Spontaneous
  Country: US (occurrence: US)
  Receive Date: 20180521
  Receipt Date: 20180521
  Transmission Date: 20180711
  Serious: No
  Sender: FDA-Public Use
  Company Number: US-ACCORD-063136

PATIENT
  Age: 79 Year
  Sex: Female
  Weight: 90.72 kg

DRUGS (1)
  1. OLMESARTAN ACCORD [Suspect]
     Active Substance: OLMESARTAN
     Indication: HYPERTENSION
     Dosage: 40 MG ONCE DAILY
     Route: 048
     Dates: start: 20180119

REACTIONS (4)
  - Product substitution issue [Unknown]
  - Product odour abnormal [Unknown]
  - Oral discomfort [Unknown]
  - Dry mouth [Unknown]
